FAERS Safety Report 8611290-3 (Version None)
Quarter: 2012Q3

REPORT INFORMATION
  Report Type: 
  Country: None (occurrence: None)
  Receive Date: 20120822
  Receipt Date: 20120809
  Transmission Date: 20120928
  Serious: Yes (Hospitalization)
  Sender: FDA-Public Use
  Company Number: US-ELI_LILLY_AND_COMPANY-US201208003399

PATIENT
  Sex: Female

DRUGS (3)
  1. HUMALOG [Suspect]
     Indication: DIABETES MELLITUS
     Dosage: 8 U, PRN
  2. LANTUS [Concomitant]
     Dosage: 20 U, QD
  3. CORTICOSTEROIDS [Concomitant]
     Indication: PRURITUS

REACTIONS (5)
  - BLADDER DISORDER [None]
  - EMOTIONAL DISORDER [None]
  - HOSPITALISATION [None]
  - BLOOD GLUCOSE INCREASED [None]
  - VISUAL ACUITY REDUCED [None]
